FAERS Safety Report 25049965 (Version 3)
Quarter: 2025Q2

REPORT INFORMATION
  Report Type: Report from Study
  Country: US (occurrence: US)
  Receive Date: 20250307
  Receipt Date: 20250410
  Transmission Date: 20250717
  Serious: Yes (Hospitalization, Other)
  Sender: ROCHE
  Company Number: US-ROCHE-10000219459

PATIENT
  Age: 46 Year
  Sex: Female

DRUGS (6)
  1. CELLCEPT [Suspect]
     Active Substance: MYCOPHENOLATE MOFETIL
     Indication: Lupus nephritis
     Route: 065
  2. BENLYSTA [Concomitant]
     Active Substance: BELIMUMAB
  3. PREDNISONE [Concomitant]
     Active Substance: PREDNISONE
     Indication: Lupus nephritis
  4. MEDROL [Concomitant]
     Active Substance: METHYLPREDNISOLONE
     Indication: Lupus nephritis
  5. IMURAN [Concomitant]
     Active Substance: AZATHIOPRINE
     Indication: Lupus nephritis
  6. AMLODIPINE [Concomitant]
     Active Substance: AMLODIPINE BESYLATE
     Indication: Lupus nephritis

REACTIONS (33)
  - Off label use [Unknown]
  - Renal failure [Unknown]
  - Pain of skin [Unknown]
  - Pain in extremity [Unknown]
  - Alopecia [Unknown]
  - Weight increased [Unknown]
  - Brain fog [Unknown]
  - Gastrooesophageal reflux disease [Unknown]
  - Teeth brittle [Unknown]
  - Osteogenesis imperfecta [Unknown]
  - Ulcer [Unknown]
  - Hot flush [Unknown]
  - Insomnia [Unknown]
  - Hallucination [Unknown]
  - Memory impairment [Unknown]
  - Somnolence [Unknown]
  - Pain [Unknown]
  - Stress [Unknown]
  - Hypertension [Unknown]
  - Glucose tolerance impaired [Unknown]
  - Compression fracture [Unknown]
  - Compression fracture [Unknown]
  - Dizziness [Unknown]
  - Abdominal pain [Unknown]
  - Urine abnormality [Unknown]
  - Pyrexia [Unknown]
  - Fatigue [Unknown]
  - Peripheral swelling [Unknown]
  - Osteoarthritis [Unknown]
  - Protein urine present [Unknown]
  - Deep vein thrombosis [Unknown]
  - Ill-defined disorder [Unknown]
  - Swelling [Unknown]
